FAERS Safety Report 9132740 (Version 1)
Quarter: 2013Q1

REPORT INFORMATION
  Report Type: Spontaneous
  Country: IT (occurrence: IT)
  Receive Date: 20130301
  Receipt Date: 20130301
  Transmission Date: 20140127
  Serious: Yes (Hospitalization)
  Sender: FDA-Public Use
  Company Number: IT-PFIZER INC-2012271382

PATIENT
  Age: 80 Year
  Sex: Female

DRUGS (8)
  1. MEDROL [Suspect]
     Dosage: UNK
     Route: 048
     Dates: start: 20111008
  2. KLACID [Suspect]
     Indication: PYREXIA
     Dosage: UNK
     Route: 042
     Dates: start: 20121004
  3. ISOSORBIDE DINITRATE [Concomitant]
  4. PANTECTA [Concomitant]
     Dosage: 40 MG, UNK
  5. LASIX [Concomitant]
     Dosage: 50 MG, UNK
  6. TACHIDOL [Concomitant]
     Dosage: 3 DF, UNK
  7. CARDIOASPIRIN [Concomitant]
  8. CONCOR [Concomitant]

REACTIONS (1)
  - Hyperglycaemia [Unknown]
